FAERS Safety Report 14690781 (Version 2)
Quarter: 2018Q2

REPORT INFORMATION
  Report Type: Spontaneous
  Country: US (occurrence: US)
  Receive Date: 20180328
  Receipt Date: 20180522
  Transmission Date: 20180711
  Serious: Yes (Disabling)
  Sender: FDA-Public Use
  Company Number: US-FERRINGPH-2018FE01430

PATIENT

DRUGS (5)
  1. FIRMAGON [Suspect]
     Active Substance: DEGARELIX ACETATE
     Indication: PROSTATE CANCER METASTATIC
     Dosage: 80 MG, EVERY 28 DAYS
     Route: 058
     Dates: start: 20180307, end: 20180307
  2. SILDENAFIL. [Concomitant]
     Active Substance: SILDENAFIL
     Indication: ERECTILE DYSFUNCTION
     Route: 065
  3. LISINOPRIL HCTZ [Concomitant]
     Active Substance: HYDROCHLOROTHIAZIDE\LISINOPRIL
     Indication: HYPERTENSION
     Dosage: UNK, DAILY
     Route: 048
  4. FIRMAGON [Suspect]
     Active Substance: DEGARELIX ACETATE
     Dosage: 240 MG, ONCE/SINGLE
     Route: 058
     Dates: start: 20180207, end: 20180207
  5. VITAMIN C [Concomitant]
     Active Substance: ASCORBIC ACID
     Indication: ROUTINE HEALTH MAINTENANCE
     Dosage: UNK, DAILY
     Route: 048
     Dates: start: 201802

REACTIONS (8)
  - Peripheral swelling [Recovering/Resolving]
  - Disability [Recovering/Resolving]
  - Injection site swelling [Unknown]
  - Pain [Recovering/Resolving]
  - Swelling [Recovering/Resolving]
  - Injection site erythema [Unknown]
  - Injection site pain [Unknown]
  - Loss of personal independence in daily activities [Recovering/Resolving]

NARRATIVE: CASE EVENT DATE: 2018
